FAERS Safety Report 7789703-9 (Version None)
Quarter: 2011Q3

REPORT INFORMATION
  Report Type: 
  Country: None (occurrence: None)
  Receive Date: 20110930
  Receipt Date: 20110920
  Transmission Date: 20111222
  Serious: Yes (Hospitalization, Other)
  Sender: FDA-Public Use
  Company Number: JP-ABBOTT-10P-087-0673811-00

PATIENT
  Sex: Female
  Weight: 64 kg

DRUGS (15)
  1. HUMIRA [Suspect]
     Indication: COLITIS ULCERATIVE
     Dosage: BASELINE
     Route: 058
     Dates: start: 20100427, end: 20100427
  2. HUMIRA [Suspect]
     Dates: start: 20100803, end: 20100828
  3. PENTASA [Concomitant]
     Indication: COLITIS ULCERATIVE
     Route: 048
     Dates: start: 20100327, end: 20101023
  4. MUCOSTA [Concomitant]
     Indication: PROPHYLAXIS AGAINST GASTROINTESTINAL ULCER
     Route: 048
     Dates: start: 20091009
  5. IDOMETHINE [Concomitant]
     Indication: OSTEOARTHRITIS
     Route: 062
     Dates: start: 20091009
  6. BIOFERMIN [Concomitant]
     Indication: COLITIS ULCERATIVE
     Route: 048
     Dates: start: 20100523
  7. HUMIRA [Suspect]
     Dates: start: 20100911, end: 20100911
  8. PREDNISOLONE [Concomitant]
     Indication: COLITIS ULCERATIVE
     Route: 048
     Dates: start: 20091212
  9. LANSOPRAZOLE [Concomitant]
     Indication: GASTROOESOPHAGEAL REFLUX DISEASE
     Route: 048
     Dates: start: 20091009
  10. HUMIRA [Suspect]
     Dosage: WEEK 2
     Route: 058
  11. PREDNISOLONE [Concomitant]
  12. STROCAIN [Concomitant]
     Indication: GASTRITIS
     Route: 048
     Dates: start: 20100409
  13. HUMIRA [Suspect]
     Dosage: UNKNOWN
     Route: 058
  14. GASCON [Concomitant]
     Indication: COLITIS ULCERATIVE
     Route: 048
     Dates: start: 20100618
  15. HUMIRA [Suspect]
     Dosage: RESCUE
     Route: 058
     Dates: start: 20100706, end: 20100720

REACTIONS (1)
  - CERVIX CARCINOMA [None]
